FAERS Safety Report 24527649 (Version 1)
Quarter: 2024Q4

REPORT INFORMATION
  Report Type: Spontaneous
  Country: US (occurrence: US)
  Receive Date: 20241021
  Receipt Date: 20241021
  Transmission Date: 20250115
  Serious: No
  Sender: AMNEAL
  Company Number: US-AMNEAL PHARMACEUTICALS-2024-AMRX-00506

PATIENT
  Age: 63 Year
  Sex: Female

DRUGS (1)
  1. PROGESTERONE [Suspect]
     Active Substance: PROGESTERONE
     Indication: Endometrial hyperplasia
     Dosage: 200 MG, 10 DAYS EVERY 3 MONTHS
     Route: 048

REACTIONS (4)
  - Vaginal haemorrhage [Unknown]
  - Abdominal distension [Unknown]
  - Abdominal pain [Unknown]
  - Drug intolerance [Unknown]
